FAERS Safety Report 9753279 (Version 3)
Quarter: 2018Q2

REPORT INFORMATION
  Report Type: Spontaneous
  Country: JP (occurrence: JP)
  Receive Date: 20131213
  Receipt Date: 20180517
  Transmission Date: 20180711
  Serious: Yes (Hospitalization)
  Sender: FDA-Public Use
  Company Number: JP-BAYER-2013-151344

PATIENT
  Age: 48 Year
  Sex: Female
  Weight: 52 kg

DRUGS (4)
  1. TAKEPRON [Concomitant]
     Active Substance: LANSOPRAZOLE
     Indication: GASTROOESOPHAGEAL REFLUX DISEASE
     Dosage: DAILY DOSE 15 MG
     Route: 048
     Dates: start: 20110628
  2. SELBEX [Concomitant]
     Active Substance: TEPRENONE
     Indication: CHRONIC GASTRITIS
     Dosage: DAILY DOSE 150 MG
     Route: 048
     Dates: start: 20111129
  3. YAZ [Suspect]
     Active Substance: DROSPIRENONE\ETHINYL ESTRADIOL
     Indication: DYSMENORRHOEA
     Dosage: 1 DF, QD
     Route: 048
     Dates: start: 20111129, end: 20130625
  4. LEXOTAN [Concomitant]
     Active Substance: BROMAZEPAM
     Indication: ANXIETY DISORDER
     Dosage: DAILY DOSE 16 MG
     Route: 048
     Dates: start: 20111129

REACTIONS (1)
  - Uterine cancer [Recovered/Resolved]

NARRATIVE: CASE EVENT DATE: 20130528
